FAERS Safety Report 7787609-2 (Version None)
Quarter: 2011Q3

REPORT INFORMATION
  Report Type: 
  Country: None (occurrence: None)
  Receive Date: 20110929
  Receipt Date: 20100526
  Transmission Date: 20111222
  Serious: Yes (Life-Threatening, Hospitalization)
  Sender: FDA-Public Use
  Company Number: US-BAYER-201017023NA

PATIENT
  Age: 23 Year
  Sex: Female
  Weight: 52 kg

DRUGS (5)
  1. DICYCLOMINE [Concomitant]
  2. PROMETHEGAN [Concomitant]
  3. YAZ [Suspect]
     Indication: CONTRACEPTION
     Dosage: UNK
     Route: 048
     Dates: start: 20060101, end: 20090315
  4. METOCLOPRAMIDE [Concomitant]
  5. HYDROCODONE BITARTRATE AND ACETAMINOPHEN [Concomitant]

REACTIONS (6)
  - GALLBLADDER DISORDER [None]
  - ANXIETY [None]
  - PAIN [None]
  - ORGAN FAILURE [None]
  - CHOLECYSTITIS CHRONIC [None]
  - CHOLELITHIASIS [None]
